FAERS Safety Report 18424696 (Version 1)
Quarter: 2020Q4

REPORT INFORMATION
  Report Type: Spontaneous
  Country: NL (occurrence: NL)
  Receive Date: 20201026
  Receipt Date: 20201026
  Transmission Date: 20210114
  Serious: Yes (Other)
  Sender: FDA-Public Use
  Company Number: NL-SUN PHARMACEUTICAL INDUSTRIES LTD-2020RR-265329

PATIENT
  Age: 58 Year
  Sex: Female
  Weight: 65 kg

DRUGS (6)
  1. METOPROLOL TABLET   50MG / BRAND NAME NOT SPECIFIEDMETOPROLOL TABLE... [Concomitant]
     Indication: PRODUCT USED FOR UNKNOWN INDICATION
     Dosage: TABLET, 50 MG (MILLIGRAM) ()
     Route: 065
  2. CALCIUMCARB/COLECALC KAUWTB 1,25G/400IE (500MG CA) / TACAL D3 KAUWT... [Concomitant]
     Indication: PRODUCT USED FOR UNKNOWN INDICATION
     Dosage: 1X 1 TABLET
     Route: 065
  3. LETROZOLE. [Suspect]
     Active Substance: LETROZOLE
     Indication: BREAST CANCER
     Dosage: 1X PER DAY 1 PIECE
     Route: 065
     Dates: start: 201903
  4. ESOMEPRAZOL CAPSULE MSR 20MG / BRAND NAME NOT SPECIFIEDESOMEPRAZOL ... [Concomitant]
     Indication: PRODUCT USED FOR UNKNOWN INDICATION
     Dosage: 1X20 MG
     Route: 065
  5. SIMVASTATINE TABLET FO 10MG / BRAND NAME NOT SPECIFIEDSIMVASTATINE ... [Concomitant]
     Indication: PRODUCT USED FOR UNKNOWN INDICATION
     Dosage: 1X10 MG
     Route: 065
  6. ACETYLSALICYLZUUR TABLET  80MG / BRAND NAME NOT SPECIFIEDACETYLSALI... [Concomitant]
     Indication: PRODUCT USED FOR UNKNOWN INDICATION
     Dosage: 1X 80 MG
     Route: 065

REACTIONS (1)
  - Leukoplakia oral [Not Recovered/Not Resolved]

NARRATIVE: CASE EVENT DATE: 20191104
